FAERS Safety Report 5633786-9 (Version None)
Quarter: 2008Q1

REPORT INFORMATION
  Report Type: 
  Country: None (occurrence: None)
  Receive Date: 20080131
  Receipt Date: 20070323
  Transmission Date: 20080703
  Serious: Yes (Other)
  Sender: FDA-Public Use
  Company Number: 153099USA

PATIENT
  Age: 60 Year
  Sex: Female

DRUGS (20)
  1. COPAXONE [Suspect]
     Indication: MULTIPLE SCLEROSIS
     Dosage: (20 MG),SUBCUTANEOUS
     Route: 058
  2. TIZANIDINE HYDROCHLORIDE [Concomitant]
  3. OXYCODONE HCL [Concomitant]
  4. THEOPHYLLINE [Concomitant]
  5. PREGABALIN [Concomitant]
  6. FLURAZEPAM HYDROCHLORIDE [Concomitant]
  7. ALPRAZOLAM [Concomitant]
  8. POTASSIUM CHLORIDE [Concomitant]
  9. SUCRALFATE [Concomitant]
  10. ATORVASTATIN CALCIUM [Concomitant]
  11. BISACODYL [Concomitant]
  12. FENOFIBRATE [Concomitant]
  13. AMLODIPINE [Concomitant]
  14. LEVETIRACETAM [Concomitant]
  15. ESTROGENS CONJUGATED [Concomitant]
  16. BREVA [Concomitant]
  17. FUROSEMIDE [Concomitant]
  18. FOLIC ACID [Concomitant]
  19. TOLTERODIINE [Concomitant]
  20. METOPROLOL SUCCINATE [Concomitant]

REACTIONS (1)
  - CONVULSION [None]
